FAERS Safety Report 25428043 (Version 1)
Quarter: 2025Q2

REPORT INFORMATION
  Report Type: Report from Study
  Country: IN (occurrence: IN)
  Receive Date: 20250612
  Receipt Date: 20250612
  Transmission Date: 20250716
  Serious: Yes (Death, Hospitalization, Other)
  Sender: GLAXOSMITHKLINE
  Company Number: IN-GLAXOSMITHKLINE INC-IN2025APC030463

PATIENT
  Age: 56 Year
  Sex: Female

DRUGS (1)
  1. MEPOLIZUMAB [Suspect]
     Active Substance: MEPOLIZUMAB
     Indication: Asthma
     Dosage: 100 MG, Q4W, INJECTION

REACTIONS (3)
  - Death [Fatal]
  - Dyspnoea [Unknown]
  - Injury [Unknown]

NARRATIVE: CASE EVENT DATE: 20250201
